FAERS Safety Report 18458738 (Version 1)
Quarter: 2020Q4

REPORT INFORMATION
  Report Type: Spontaneous
  Country: IT (occurrence: IT)
  Receive Date: 20201103
  Receipt Date: 20201103
  Transmission Date: 20210114
  Serious: Yes (Hospitalization)
  Sender: FDA-Public Use
  Company Number: NVSC2020IT287215

PATIENT
  Age: 67 Year
  Sex: Female
  Weight: 53 kg

DRUGS (15)
  1. AVELUMAB [Suspect]
     Active Substance: AVELUMAB
     Indication: COLORECTAL CANCER METASTATIC
     Dosage: 800 MG, UNKNOWN
     Route: 042
     Dates: start: 20200812
  2. CETUXIMAB. [Suspect]
     Active Substance: CETUXIMAB
     Dosage: 795 MG, UNKNOWN
     Route: 042
     Dates: start: 20200909
  3. OXALIPLATIN. [Suspect]
     Active Substance: OXALIPLATIN
     Indication: COLORECTAL CANCER METASTATIC
     Dosage: 138 MG, UNKNOWN
     Route: 065
     Dates: start: 20200812
  4. FLUOROURACIL. [Suspect]
     Active Substance: FLUOROURACIL
     Dosage: 2862 MG, UNKNOWN
     Route: 042
     Dates: start: 20201006
  5. CETUXIMAB. [Suspect]
     Active Substance: CETUXIMAB
     Indication: COLORECTAL CANCER METASTATIC
     Dosage: 795 MG, UNKNOWN
     Route: 042
     Dates: start: 20200812
  6. IRINOTECAN [Suspect]
     Active Substance: IRINOTECAN
     Indication: COLORECTAL CANCER METASTATIC
     Dosage: 243 MG, UNKNOWN
     Route: 042
     Dates: start: 20200812
  7. FLUOROURACIL. [Suspect]
     Active Substance: FLUOROURACIL
     Indication: COLORECTAL CANCER METASTATIC
     Dosage: 3888 MG, UNKNOWN
     Route: 042
     Dates: start: 20200812
  8. AVELUMAB [Suspect]
     Active Substance: AVELUMAB
     Dosage: 800 MG, UNKNOWN
     Route: 042
     Dates: start: 20200909
  9. FLUOROURACIL. [Suspect]
     Active Substance: FLUOROURACIL
     Dosage: 3888 MG, UNKNOWN
     Route: 042
     Dates: start: 20200909
  10. CETUXIMAB. [Suspect]
     Active Substance: CETUXIMAB
     Dosage: 795 MG, UNKNOWN
     Route: 042
     Dates: start: 20201006
  11. OXALIPLATIN. [Suspect]
     Active Substance: OXALIPLATIN
     Dosage: 138 MG, UNKNOWN
     Route: 065
     Dates: start: 20200909
  12. IRINOTECAN [Suspect]
     Active Substance: IRINOTECAN
     Dosage: 243 MG, UNKNOWN
     Route: 042
     Dates: start: 20200909
  13. IRINOTECAN [Suspect]
     Active Substance: IRINOTECAN
     Dosage: 179 MG, UNKNOWN
     Route: 042
     Dates: start: 20201006
  14. OMEPRAZOLE. [Concomitant]
     Active Substance: OMEPRAZOLE
     Indication: PRODUCT USED FOR UNKNOWN INDICATION
     Dosage: UNK
     Route: 065
     Dates: start: 20200717
  15. AVELUMAB [Suspect]
     Active Substance: AVELUMAB
     Dosage: 800 MG, UNKNOWN
     Route: 042
     Dates: start: 20201006

REACTIONS (4)
  - Dehydration [Unknown]
  - Hypokalaemia [Unknown]
  - Diarrhoea [Recovered/Resolved]
  - Hyponatraemia [Unknown]
